FAERS Safety Report 6053968-4 (Version None)
Quarter: 2009Q1

REPORT INFORMATION
  Report Type: 
  Country: None (occurrence: None)
  Receive Date: 20090127
  Receipt Date: 20090120
  Transmission Date: 20090719
  Serious: Yes (Other)
  Sender: FDA-Public Use
  Company Number: JP-MERCK-0901USA02898

PATIENT
  Age: 53 Year
  Sex: Male

DRUGS (4)
  1. PROPECIA [Suspect]
     Indication: ANDROGENETIC ALOPECIA
     Route: 048
     Dates: start: 20080621, end: 20081201
  2. FLIVAS [Suspect]
     Indication: BENIGN PROSTATIC HYPERPLASIA
     Route: 048
     Dates: start: 20080412, end: 20080607
  3. URIEF [Suspect]
     Indication: BENIGN PROSTATIC HYPERPLASIA
     Route: 048
     Dates: start: 20080621
  4. CLARITIN [Suspect]
     Indication: DERMATITIS CONTACT
     Route: 048
     Dates: start: 20080816, end: 20080830

REACTIONS (1)
  - ASPERMIA [None]
